FAERS Safety Report 4861168-6 (Version None)
Quarter: 2005Q4

REPORT INFORMATION
  Report Type: 
  Country: None (occurrence: None)
  Receive Date: 20051216
  Receipt Date: 20051129
  Transmission Date: 20060501
  Serious: Yes (Life-Threatening)
  Sender: FDA-Public Use
  Company Number: 200514164GDS

PATIENT
  Age: 43 Year
  Sex: Female

DRUGS (2)
  1. ACETYLSALICYLIC ACID SRT [Suspect]
     Indication: HEART DISEASE CONGENITAL
     Dosage: 100 MG, ORAL
     Route: 048
     Dates: start: 20051123
  2. NEXIUM [Suspect]
     Indication: GASTRODUODENITIS
     Dosage: 40 MG, TOTAL DAILY, ORAL
     Route: 048
     Dates: start: 20051123

REACTIONS (4)
  - ANAPHYLACTIC REACTION [None]
  - CHOKING SENSATION [None]
  - LARYNGEAL OEDEMA [None]
  - RASH PUSTULAR [None]
